FAERS Safety Report 6733533-3 (Version None)
Quarter: 2010Q2

REPORT INFORMATION
  Report Type: 
  Country: None (occurrence: None)
  Receive Date: 20100520
  Receipt Date: 20100520
  Transmission Date: 20101027
  Serious: No
  Sender: FDA-Public Use
  Company Number: None

PATIENT
  Age: 8 Year
  Sex: Male
  Weight: 34.927 kg

DRUGS (2)
  1. TYLENOL CHILDREN AS DIRECTED MCNEIL [Suspect]
     Indication: PYREXIA
     Dosage: TYLENOL EVERY 4 HURS PO
     Route: 048
     Dates: start: 20100410, end: 20100415
  2. CHILDREN'S MOTRIN [Suspect]
     Indication: PYREXIA
     Dosage: MOTRIN EVERY 6 HRS PO
     Route: 048
     Dates: start: 20100410, end: 20100415

REACTIONS (6)
  - HAEMATOCHEZIA [None]
  - MALAISE [None]
  - MUCOUS STOOLS [None]
  - PRODUCT QUALITY ISSUE [None]
  - PYREXIA [None]
  - SPLENOMEGALY [None]
